FAERS Safety Report 9274361 (Version 4)
Quarter: 2015Q2

REPORT INFORMATION
  Report Type: Spontaneous
  Country: US (occurrence: US)
  Receive Date: 20130506
  Receipt Date: 20150427
  Transmission Date: 20150821
  Serious: No
  Sender: FDA-Public Use
  Company Number: US-009507513-1305USA001681

PATIENT
  Sex: Male
  Weight: 75.74 kg

DRUGS (3)
  1. PROPECIA [Suspect]
     Active Substance: FINASTERIDE
     Indication: ANDROGENETIC ALOPECIA
     Dosage: 1 MG, UNK
     Route: 048
     Dates: start: 20051027, end: 200604
  2. PROPECIA [Suspect]
     Active Substance: FINASTERIDE
     Indication: ALOPECIA
     Dosage: 1 MG, QD
     Route: 048
     Dates: start: 20001217, end: 20100610
  3. PROSCAR [Suspect]
     Active Substance: FINASTERIDE
     Indication: ALOPECIA
     Dosage: UNK
     Route: 048
     Dates: start: 1994

REACTIONS (22)
  - Sebaceous hyperplasia [Unknown]
  - Sexual dysfunction [Not Recovered/Not Resolved]
  - Contusion [Unknown]
  - Hair disorder [Unknown]
  - Insomnia [Unknown]
  - Diffuse alopecia [Unknown]
  - Lymphadenopathy [Unknown]
  - Dry eye [Unknown]
  - Loss of libido [Not Recovered/Not Resolved]
  - Erectile dysfunction [Not Recovered/Not Resolved]
  - Drug administration error [Unknown]
  - Bladder disorder [Not Recovered/Not Resolved]
  - Ejaculation failure [Unknown]
  - Hypersensitivity [Unknown]
  - Telangiectasia [Unknown]
  - Prostatomegaly [Not Recovered/Not Resolved]
  - Semen volume decreased [Not Recovered/Not Resolved]
  - Anxiety [Not Recovered/Not Resolved]
  - Chest pain [Unknown]
  - Tinnitus [Unknown]
  - Depression [Not Recovered/Not Resolved]
  - Hypersensitivity [Unknown]

NARRATIVE: CASE EVENT DATE: 1994
